FAERS Safety Report 7718110-X (Version None)
Quarter: 2011Q3

REPORT INFORMATION
  Report Type: 
  Country: None (occurrence: None)
  Receive Date: 20110830
  Receipt Date: 20110824
  Transmission Date: 20111222
  Serious: Yes (Other)
  Sender: FDA-Public Use
  Company Number: PR-B.I. PHARMACEUTICALS,INC./RIDGEFIELD-2011-BP-20711BP

PATIENT
  Age: 79 Year
  Sex: Male

DRUGS (4)
  1. PRADAXA [Suspect]
     Indication: ATRIAL FIBRILLATION
     Dosage: 300 MG
     Route: 048
     Dates: start: 20110604, end: 20110817
  2. CARDIZEM [Concomitant]
     Indication: HYPERTENSION
     Route: 048
  3. CASODEX [Concomitant]
     Indication: NEOPLASM MALIGNANT
     Route: 048
  4. ZOCOR [Concomitant]
     Indication: BLOOD CHOLESTEROL INCREASED
     Route: 048

REACTIONS (4)
  - SUICIDAL IDEATION [None]
  - FATIGUE [None]
  - DIZZINESS [None]
  - DEPRESSION [None]
